FAERS Safety Report 7534662-7 (Version None)
Quarter: 2011Q2

REPORT INFORMATION
  Report Type: 
  Country: None (occurrence: None)
  Receive Date: 20110609
  Receipt Date: 20110302
  Transmission Date: 20111010
  Serious: Yes (Death, Hospitalization)
  Sender: FDA-Public Use
  Company Number: PHHY2010US83823

PATIENT
  Sex: Male

DRUGS (17)
  1. MULTI-VITAMIN [Concomitant]
  2. LAXATIVES [Concomitant]
  3. ZOCOR [Concomitant]
  4. ACETAMINOPHEN [Concomitant]
  5. ALBUTEROL SULFATE AUTOHALER [Concomitant]
  6. PHENERGAN EXPECTORANT W/ CODEINE [Concomitant]
     Indication: COUGH
  7. AMBIEN [Concomitant]
  8. EXJADE [Suspect]
     Indication: MULTIPLE MYELOMA
     Dosage: 500 MG, DAILY
     Route: 048
  9. EXJADE [Suspect]
     Indication: IRON OVERLOAD
  10. DEXAMETHASONE [Concomitant]
     Dosage: 40 MG, UNK
  11. NORCO [Concomitant]
  12. ATARAX [Concomitant]
     Indication: PRURITUS
  13. GABAPENTIN [Concomitant]
     Dosage: 100 MG, BID
  14. PEPCID [Concomitant]
     Dosage: 20 MG, UNK
  15. CYMBALTA [Concomitant]
     Dosage: 60 MG, DAILY
  16. STEROIDS NOS [Concomitant]
  17. XANAX [Concomitant]
     Dosage: 1 MG, UNK

REACTIONS (7)
  - AREFLEXIA [None]
  - ASTHENIA [None]
  - PROTEIN TOTAL DECREASED [None]
  - OSTEOARTHRITIS [None]
  - WRONG TECHNIQUE IN DRUG USAGE PROCESS [None]
  - MULTIPLE MYELOMA [None]
  - SCOLIOSIS [None]
